FAERS Safety Report 15681468 (Version 7)
Quarter: 2020Q3

REPORT INFORMATION
  Report Type: Spontaneous
  Country: CA (occurrence: CA)
  Receive Date: 20181203
  Receipt Date: 20200916
  Transmission Date: 20201102
  Serious: Yes (Other)
  Sender: FDA-Public Use
  Company Number: CA-PFIZER INC-2018303484

PATIENT
  Age: 42 Year
  Sex: Male

DRUGS (15)
  1. CANDESARTAN. [Concomitant]
     Active Substance: CANDESARTAN
     Dosage: UNK, ^4^
  2. VITAMIN D3 [Concomitant]
     Active Substance: CHOLECALCIFEROL
     Dosage: UNK, ^10000^
  3. AMLODIPINE [Concomitant]
     Active Substance: AMLODIPINE BESYLATE
     Dosage: UNK, ^5^
  4. SOMAVERT [Suspect]
     Active Substance: PEGVISOMANT
     Dosage: 25 MG, OD (AFTER 30JAN2019)
     Route: 058
     Dates: start: 2019, end: 2019
  5. SOMAVERT [Suspect]
     Active Substance: PEGVISOMANT
     Dosage: 20 MG, 1X/DAY
     Route: 058
     Dates: start: 2018, end: 2019
  6. DOSTINEX [Concomitant]
     Active Substance: CABERGOLINE
     Indication: ACROMEGALY
     Dosage: 0.25 MG, WEEKLY FOR 2 DOSES
     Route: 048
     Dates: start: 20170816, end: 201708
  7. VALACYCLOVIR [Concomitant]
     Active Substance: VALACYCLOVIR HYDROCHLORIDE
     Indication: SKIN LESION
     Dosage: 250 MG, (2XDAY) AS NEEDED
     Route: 048
  8. LOPROX [Concomitant]
     Active Substance: CICLOPIROX\CICLOPIROX OLAMINE
     Dosage: APPLICATION TO GROIN , DAILY AS NEEDED
     Route: 061
  9. SOMAVERT [Suspect]
     Active Substance: PEGVISOMANT
     Indication: ACROMEGALY
     Dosage: 10 MG, 1X/DAY
     Route: 058
     Dates: start: 20180723, end: 2018
  10. ANDROGEL [Concomitant]
     Active Substance: TESTOSTERONE
     Dosage: 5 G, DAILY
  11. SOMAVERT [Suspect]
     Active Substance: PEGVISOMANT
     Dosage: 20 MG, 1X/DAY
     Route: 058
     Dates: start: 2018, end: 20181122
  12. MOMETASONE [Concomitant]
     Active Substance: MOMETASONE
     Dosage: (2 SPRAYS) 50 UG IN EACH NOSTRIL, (DAILY) AS NEEDED
     Route: 045
  13. SOMAVERT [Suspect]
     Active Substance: PEGVISOMANT
     Dosage: 30 MG, OD (AFTER 20FEB2019)
     Route: 058
     Dates: start: 2019
  14. DOSTINEX [Concomitant]
     Active Substance: CABERGOLINE
     Dosage: 0.5 MG, WEEKLY
     Route: 048
     Dates: start: 201708
  15. COVERSYL PLUS /01421201/ [Concomitant]
     Active Substance: INDAPAMIDE\PERINDOPRIL ERBUMINE
     Dosage: 4MG/1.25MG, DAILY
     Route: 048

REACTIONS (9)
  - Hypogonadism [Unknown]
  - Insulin-like growth factor increased [Recovered/Resolved]
  - Therapeutic product effect incomplete [Recovered/Resolved]
  - Mental impairment [Unknown]
  - Fatigue [Unknown]
  - Decreased activity [Unknown]
  - Neoplasm [Unknown]
  - Adrenal insufficiency [Unknown]
  - Hypopituitarism [Unknown]
